FAERS Safety Report 20896179 (Version 1)
Quarter: 2022Q2

REPORT INFORMATION
  Report Type: Spontaneous
  Country: ES (occurrence: ES)
  Receive Date: 20220531
  Receipt Date: 20220531
  Transmission Date: 20220720
  Serious: Yes (Hospitalization)
  Sender: FDA-Public Use
  Company Number: ES-MYLANLABS-2022M1041131

PATIENT
  Age: 36 Year
  Sex: Female

DRUGS (3)
  1. ADALIMUMAB [Suspect]
     Active Substance: ADALIMUMAB
     Indication: Crohn^s disease
     Dosage: UNK, BIWEEKLY
     Route: 065
  2. DOXYCYCLINE [Concomitant]
     Active Substance: DOXYCYCLINE
     Indication: Product used for unknown indication
     Dosage: UNK
     Route: 065
  3. ALTEPLASE [Concomitant]
     Active Substance: ALTEPLASE
     Indication: Cerebrovascular accident
     Dosage: UNK
     Route: 042

REACTIONS (3)
  - Myelin oligodendrocyte glycoprotein antibody-associated disease [Recovered/Resolved]
  - Encephalitis autoimmune [Recovered/Resolved]
  - Seizure [Recovered/Resolved]
